FAERS Safety Report 5266684-3 (Version None)
Quarter: 2007Q1

REPORT INFORMATION
  Report Type: 
  Country: None (occurrence: None)
  Receive Date: 20070312
  Receipt Date: 20070226
  Transmission Date: 20070707
  Serious: Yes (Hospitalization)
  Sender: FDA-Public Use
  Company Number: B0461149A

PATIENT
  Age: 43 Year
  Sex: Female

DRUGS (2)
  1. MALARONE [Suspect]
     Indication: PLASMODIUM FALCIPARUM INFECTION
  2. SODIUM ARTESUNATE [Concomitant]

REACTIONS (4)
  - AGITATION [None]
  - DRUG INEFFECTIVE [None]
  - MYOCLONIC EPILEPSY [None]
  - PYREXIA [None]
